FAERS Safety Report 12228460 (Version 1)
Quarter: 2016Q1

REPORT INFORMATION
  Report Type: Spontaneous
  Country: US (occurrence: None)
  Receive Date: 20160330
  Receipt Date: 20160330
  Transmission Date: 20160526
  Serious: Yes (Other)
  Sender: FDA-Public Use
  Company Number: None

PATIENT
  Age: 56 Year
  Sex: Female
  Weight: 103.87 kg

DRUGS (3)
  1. CALCIUM [Concomitant]
     Active Substance: CALCIUM
  2. XARELTO [Suspect]
     Active Substance: RIVAROXABAN
     Indication: PULMONARY EMBOLISM
     Dosage: 30 TABLETS ONCE A DAY
     Route: 048
     Dates: start: 20150401, end: 20160322
  3. VITAMIN D3 [Concomitant]
     Active Substance: CHOLECALCIFEROL

REACTIONS (6)
  - Metamorphopsia [None]
  - Rash [None]
  - Sunburn [None]
  - Confusional state [None]
  - Headache [None]
  - Ocular discomfort [None]

NARRATIVE: CASE EVENT DATE: 20160316
